FAERS Safety Report 7358698-4 (Version None)
Quarter: 2011Q1

REPORT INFORMATION
  Report Type: 
  Country: None (occurrence: None)
  Receive Date: 20110317
  Receipt Date: 20110310
  Transmission Date: 20110831
  Serious: Yes (Hospitalization)
  Sender: FDA-Public Use
  Company Number: A0789787A

PATIENT
  Age: 60 Year
  Sex: Male
  Weight: 106.8 kg

DRUGS (6)
  1. GLYSET [Concomitant]
  2. METFORMIN HCL [Concomitant]
  3. INSULIN [Concomitant]
  4. AVANDIA [Suspect]
     Indication: DIABETES MELLITUS
     Dosage: 8MG TWICE PER DAY
     Route: 048
     Dates: start: 20010627, end: 20071003
  5. ALTACE [Concomitant]
  6. LIPITOR [Concomitant]

REACTIONS (4)
  - PULMONARY HYPERTENSION [None]
  - CEREBROVASCULAR ACCIDENT [None]
  - CEREBROVASCULAR DISORDER [None]
  - CARDIAC DISORDER [None]
